FAERS Safety Report 15488057 (Version 1)
Quarter: 2018Q4

REPORT INFORMATION
  Report Type: Spontaneous
  Country: US (occurrence: US)
  Receive Date: 20181011
  Receipt Date: 20181011
  Transmission Date: 20190205
  Serious: No
  Sender: FDA-Public Use
  Company Number: US-BAYER-2018-189859

PATIENT
  Age: 52 Year
  Sex: Male
  Weight: 76.96 kg

DRUGS (1)
  1. ZEGERID OTC CAPSULES [Suspect]
     Active Substance: OMEPRAZOLE\SODIUM BICARBONATE
     Indication: DYSPEPSIA
     Dosage: 1 DF, QD
     Route: 048
     Dates: start: 20181007, end: 20181007

REACTIONS (3)
  - Drug screen false positive [Unknown]
  - Expired product administered [Unknown]
  - Alcohol test false positive [Unknown]

NARRATIVE: CASE EVENT DATE: 20181009
